FAERS Safety Report 10150186 (Version 2)
Quarter: 2014Q2

REPORT INFORMATION
  Report Type: Spontaneous
  Country: BR (occurrence: BR)
  Receive Date: 20140502
  Receipt Date: 20140602
  Transmission Date: 20141212
  Serious: Yes (Other)
  Sender: FDA-Public Use
  Company Number: BR-JNJFOC-20140417297

PATIENT
  Sex: 0

DRUGS (1)
  1. ITRACONAZOLE [Suspect]
     Indication: PARACOCCIDIOIDES INFECTION
     Dosage: AFTER A MEAL
     Route: 048

REACTIONS (6)
  - Hepatobiliary disease [Unknown]
  - Gamma-glutamyltransferase increased [Unknown]
  - Renal impairment [Unknown]
  - Treatment failure [Unknown]
  - Headache [Unknown]
  - Dizziness [Unknown]
